FAERS Safety Report 8519066-2 (Version None)
Quarter: 2012Q3

REPORT INFORMATION
  Report Type: 
  Country: None (occurrence: None)
  Receive Date: 20120718
  Receipt Date: 20120716
  Transmission Date: 20120928
  Serious: Yes (Hospitalization, Disabling)
  Sender: FDA-Public Use
  Company Number: FR-PFIZER INC-2012170142

PATIENT
  Age: 53 Year
  Sex: Female

DRUGS (2)
  1. OMEPRAZOLE [Concomitant]
  2. DOSTINEX [Suspect]
     Indication: ADENOMA BENIGN
     Dosage: 0.5 MG, UNK
     Route: 048
     Dates: end: 20120101

REACTIONS (1)
  - DYSPNOEA [None]
